FAERS Safety Report 5217810-3 (Version None)
Quarter: 2007Q1

REPORT INFORMATION
  Report Type: 
  Country: None (occurrence: None)
  Receive Date: 20061130
  Receipt Date: 20060901
  Transmission Date: 20070707
  Serious: Yes (Hospitalization)
  Sender: FDA-Public Use
  Company Number: US200609000234

PATIENT
  Age: 45 Year
  Sex: Female
  Weight: 97.5 kg

DRUGS (1)
  1. ZYPREXA [Suspect]
     Dosage: UNK
     Dates: start: 20000801

REACTIONS (2)
  - BLOOD GLUCOSE INCREASED [None]
  - DIABETES MELLITUS [None]
